FAERS Safety Report 13484721 (Version 1)
Quarter: 2017Q2

REPORT INFORMATION
  Report Type: Spontaneous
  Country: US (occurrence: US)
  Receive Date: 20170426
  Receipt Date: 20170426
  Transmission Date: 20170830
  Serious: No
  Sender: FDA-Public Use
  Company Number: US-PFIZER INC-2017178593

PATIENT
  Age: 49 Year
  Sex: Female

DRUGS (5)
  1. NEURONTIN [Suspect]
     Active Substance: GABAPENTIN
     Indication: HYPERHIDROSIS
  2. NEURONTIN [Suspect]
     Active Substance: GABAPENTIN
     Indication: FATIGUE
  3. NEURONTIN [Suspect]
     Active Substance: GABAPENTIN
     Indication: MIGRAINE
     Dosage: UNK
  4. NEURONTIN [Suspect]
     Active Substance: GABAPENTIN
     Indication: PAIN
  5. NEURONTIN [Suspect]
     Active Substance: GABAPENTIN
     Indication: TREMOR

REACTIONS (2)
  - Drug ineffective for unapproved indication [Unknown]
  - Drug intolerance [Unknown]
